FAERS Safety Report 16398582 (Version 1)
Quarter: 2019Q2

REPORT INFORMATION
  Report Type: Spontaneous
  Country: US (occurrence: US)
  Receive Date: 20190606
  Receipt Date: 20190606
  Transmission Date: 20190711
  Serious: Yes (Other)
  Sender: FDA-Public Use
  Company Number: US-PHARMING-PHAUS2019000344

PATIENT

DRUGS (18)
  1. EPINEPHRINE. [Concomitant]
     Active Substance: EPINEPHRINE
  2. BACLOFEN. [Concomitant]
     Active Substance: BACLOFEN
  3. DICYCLOMINE [Concomitant]
     Active Substance: DICYCLOMINE HYDROCHLORIDE
  4. HYDROCHLOROTHIAZIDE. [Concomitant]
     Active Substance: HYDROCHLOROTHIAZIDE
     Dosage: UNK
  5. NEXIUM [Concomitant]
     Active Substance: ESOMEPRAZOLE MAGNESIUM
  6. STERILE WATER [Concomitant]
     Active Substance: WATER
  7. OXYCODONE [Concomitant]
     Active Substance: OXYCODONE
  8. APRISO [Concomitant]
     Active Substance: MESALAMINE
  9. FAMOTIDINE. [Concomitant]
     Active Substance: FAMOTIDINE
  10. FIRAZYR [Concomitant]
     Active Substance: ICATIBANT ACETATE
     Dosage: UNK
  11. RUCONEST [Suspect]
     Active Substance: HUMAN C1-ESTERASE INHIBITOR
     Indication: HEREDITARY ANGIOEDEMA
     Dosage: 3000 IU, TWICE WEEKLY
     Route: 042
     Dates: start: 20170923
  12. NEURONTIN [Concomitant]
     Active Substance: GABAPENTIN
  13. OXTELLAR XR [Concomitant]
     Active Substance: OXCARBAZEPINE
  14. HEPARIN [Concomitant]
     Active Substance: HEPARIN SODIUM
  15. ZOFRAN [Concomitant]
     Active Substance: ONDANSETRON HYDROCHLORIDE
  16. RANITIDINE. [Concomitant]
     Active Substance: RANITIDINE
  17. SODIUM CHLORIDE. [Concomitant]
     Active Substance: SODIUM CHLORIDE
  18. SUCRALFATE. [Concomitant]
     Active Substance: SUCRALFATE

REACTIONS (2)
  - Vomiting [Unknown]
  - Ulcer [Unknown]
